FAERS Safety Report 10378086 (Version 1)
Quarter: 2014Q3

REPORT INFORMATION
  Report Type: Spontaneous
  Country: FR (occurrence: None)
  Receive Date: 20140807
  Receipt Date: 20140807
  Transmission Date: 20150326
  Serious: Yes (Other)
  Sender: FDA-Public Use
  Company Number: KAD201408-000875

PATIENT
  Age: 50 Year
  Sex: Female

DRUGS (6)
  1. SMECTA [Concomitant]
     Active Substance: MONTMORILLONITE
  2. PARACETAMOL (ACETAMINOPHEN) [Suspect]
     Active Substance: ACETAMINOPHEN
     Dates: start: 201210, end: 201211
  3. RIBAVIRIN. [Suspect]
     Active Substance: RIBAVIRIN
     Indication: CHRONIC HEPATITIS C
     Route: 048
     Dates: start: 20120831, end: 20121127
  4. PLACEBO [Suspect]
     Active Substance: UNSPECIFIED INGREDIENT
     Indication: CHRONIC HEPATITIS C
     Route: 048
     Dates: start: 20120831, end: 20121123
  5. GYNOPEVARYL [Concomitant]
  6. BMS 914143 (PEGINTERFERON LAMBDA) [Suspect]
     Active Substance: PEGINTERFERON LAMBDA-1A
     Indication: CHRONIC HEPATITIS C
     Route: 058
     Dates: start: 20120831, end: 20121123

REACTIONS (1)
  - Jaundice [None]

NARRATIVE: CASE EVENT DATE: 20121119
